FAERS Safety Report 13243007 (Version 1)
Quarter: 2017Q1

REPORT INFORMATION
  Report Type: Spontaneous
  Country: US (occurrence: US)
  Receive Date: 20170216
  Receipt Date: 20170216
  Transmission Date: 20170428
  Serious: Yes (Death, Hospitalization)
  Sender: FDA-Public Use
  Company Number: None

PATIENT

DRUGS (1)
  1. RIFAMPIN. [Suspect]
     Active Substance: RIFAMPIN
     Indication: TUBERCULOSIS
     Route: 048
     Dates: start: 20161201, end: 20170115

REACTIONS (7)
  - Renal injury [None]
  - Dialysis [None]
  - Abdominal pain [None]
  - Nausea [None]
  - Liver disorder [None]
  - Product quality issue [None]
  - Vomiting [None]
